FAERS Safety Report 20669027 (Version 1)
Quarter: 2022Q2

REPORT INFORMATION
  Report Type: Spontaneous
  Country: US (occurrence: US)
  Receive Date: 20220404
  Receipt Date: 20220404
  Transmission Date: 20220720
  Serious: Yes (Other)
  Sender: FDA-Public Use
  Company Number: US-PFIZER INC-202200458533

PATIENT
  Age: 74 Year
  Sex: Female
  Weight: 84.82 kg

DRUGS (1)
  1. PREMARIN [Suspect]
     Active Substance: ESTROGENS, CONJUGATED
     Indication: Menopause
     Dosage: UNK, 1X/DAY (ONCE A DAY IN THE MORNING)

REACTIONS (5)
  - Drug dependence [Unknown]
  - Mood swings [Unknown]
  - Night sweats [Unknown]
  - Sleep disorder [Unknown]
  - Weight increased [Unknown]

NARRATIVE: CASE EVENT DATE: 20220321
